FAERS Safety Report 20616311 (Version 1)
Quarter: 2022Q1

REPORT INFORMATION
  Report Type: Spontaneous
  Country: US (occurrence: None)
  Receive Date: 20220319
  Receipt Date: 20220319
  Transmission Date: 20220423
  Serious: No
  Sender: FDA-Public Use
  Company Number: None

PATIENT
  Age: 54 Year
  Sex: Male
  Weight: 67 kg

DRUGS (6)
  1. CARBOPLATIN [Suspect]
     Active Substance: CARBOPLATIN
     Dates: end: 20220105
  2. ETOPOSIDE [Suspect]
     Active Substance: ETOPOSIDE
     Dates: end: 20220105
  3. FILGRASTIM [Suspect]
     Active Substance: FILGRASTIM
     Dates: end: 20211213
  4. IFOSFAMIDE [Suspect]
     Active Substance: IFOSFAMIDE
     Dates: end: 20211218
  5. TAXOL [Suspect]
     Active Substance: PACLITAXEL
     Dates: end: 20211216
  6. NEULASTA [Suspect]
     Active Substance: PEGFILGRASTIM
     Dates: end: 20211219

REACTIONS (7)
  - Febrile neutropenia [None]
  - Inflammation [None]
  - Colitis [None]
  - Sepsis [None]
  - Enterocolitis [None]
  - Haemoglobin decreased [None]
  - Neutrophil count decreased [None]

NARRATIVE: CASE EVENT DATE: 20220109
